FAERS Safety Report 4975729-7 (Version None)
Quarter: 2006Q2

REPORT INFORMATION
  Report Type: 
  Country: None (occurrence: None)
  Receive Date: 20060411
  Receipt Date: 20060329
  Transmission Date: 20061013
  Serious: Yes (Death)
  Sender: FDA-Public Use
  Company Number: 2006038466

PATIENT
  Age: 37 Year
  Sex: Male

DRUGS (5)
  1. UNASYN [Suspect]
     Indication: SKIN INFECTION
     Dosage: 4.5 GRAM (1.5 GRAM, 3 IN 1 D), INTRAVENOUS
     Route: 042
  2. CLOXACILLIN SODIUM [Suspect]
     Indication: SKIN INFECTION
     Dosage: 4 GRAM (DAILY), INTRAVENOUS
     Route: 042
  3. DAPSONE [Suspect]
     Indication: PEMPHIGUS
     Dosage: 200 MG (DAILY), ORAL
     Route: 048
  4. PREDNISOLONE [Concomitant]
  5. ERYTHROMYCIN [Concomitant]

REACTIONS (5)
  - CHILLS [None]
  - ERYTHEMA [None]
  - EYELID OEDEMA [None]
  - MOUTH ULCERATION [None]
  - PYREXIA [None]
